FAERS Safety Report 8230797-4 (Version None)
Quarter: 2012Q1

REPORT INFORMATION
  Report Type: 
  Country: None (occurrence: None)
  Receive Date: 20120323
  Receipt Date: 20120316
  Transmission Date: 20120608
  Serious: No
  Sender: FDA-Public Use
  Company Number: US-PFIZER INC-2012071099

PATIENT
  Sex: Female
  Weight: 96.1 kg

DRUGS (2)
  1. SUTENT [Suspect]
     Indication: METASTATIC RENAL CELL CARCINOMA
     Dosage: 50 MG, (28 DAYS CYCLE)
     Dates: start: 20120130, end: 20120301
  2. TYLENOL [Concomitant]
     Indication: PAIN
     Dosage: UNK

REACTIONS (7)
  - HEADACHE [None]
  - FATIGUE [None]
  - NAUSEA [None]
  - ASTHENIA [None]
  - ORAL PAIN [None]
  - ORAL FUNGAL INFECTION [None]
  - VAGINAL INFECTION [None]
